FAERS Safety Report 18692837 (Version 1)
Quarter: 2021Q1

REPORT INFORMATION
  Report Type: Report from Study
  Country: CA (occurrence: CA)
  Receive Date: 20210104
  Receipt Date: 20210104
  Transmission Date: 20210419
  Serious: Yes (Other)
  Sender: FDA-Public Use
  Company Number: CA-JNJFOC-20201250945

PATIENT
  Sex: Female
  Weight: 56.75 kg

DRUGS (2)
  1. STELARA [Suspect]
     Active Substance: USTEKINUMAB
     Indication: PRODUCT USED FOR UNKNOWN INDICATION
     Route: 042
  2. STELARA [Suspect]
     Active Substance: USTEKINUMAB
     Route: 058

REACTIONS (11)
  - Diarrhoea [Recovering/Resolving]
  - Sepsis [Unknown]
  - Malaise [Unknown]
  - Vomiting [Recovering/Resolving]
  - Weight decreased [Unknown]
  - Gout [Unknown]
  - Abdominal pain [Recovering/Resolving]
  - Pain [Unknown]
  - Nausea [Recovering/Resolving]
  - Serum sickness-like reaction [Unknown]
  - Muscle spasms [Unknown]

NARRATIVE: CASE EVENT DATE: 2020
